FAERS Safety Report 16931069 (Version 2)
Quarter: 2019Q4

REPORT INFORMATION
  Report Type: Spontaneous
  Country: JP (occurrence: JP)
  Receive Date: 20191017
  Receipt Date: 20191028
  Transmission Date: 20200122
  Serious: Yes (Hospitalization)
  Sender: FDA-Public Use
  Company Number: JP-BAYER-2019-186465

PATIENT

DRUGS (1)
  1. NEXAVAR [Suspect]
     Active Substance: SORAFENIB
     Indication: HEPATOCELLULAR CARCINOMA
     Dosage: 400 MG, QD
     Route: 048
     Dates: start: 201909, end: 201910

REACTIONS (3)
  - Hepatic encephalopathy [Recovered/Resolved]
  - Off label use [None]
  - Decreased appetite [Recovered/Resolved]

NARRATIVE: CASE EVENT DATE: 201910
